FAERS Safety Report 9837039 (Version 1)
Quarter: 2014Q1

REPORT INFORMATION
  Report Type: Spontaneous
  Country: US (occurrence: US)
  Receive Date: 20140123
  Receipt Date: 20140123
  Transmission Date: 20141002
  Serious: No
  Sender: FDA-Public Use
  Company Number: US-PFIZER INC-2014016853

PATIENT
  Age: 16 Year
  Sex: Male

DRUGS (2)
  1. VORICONAZOLE [Suspect]
     Indication: SCEDOSPORIUM INFECTION
     Dosage: UNK
     Route: 042
     Dates: start: 2010
  2. VORICONAZOLE [Suspect]
     Indication: SCEDOSPORIUM INFECTION
     Dosage: 200 MG, 2X/DAY
     Route: 048
     Dates: start: 2010

REACTIONS (2)
  - General physical health deterioration [Unknown]
  - Forced expiratory volume decreased [Unknown]
